FAERS Safety Report 24749644 (Version 2)
Quarter: 2025Q1

REPORT INFORMATION
  Report Type: Spontaneous
  Country: US (occurrence: US)
  Receive Date: 20241218
  Receipt Date: 20250114
  Transmission Date: 20250408
  Serious: Yes (Other)
  Sender: PFIZER
  Company Number: US-PFIZER INC-202400326621

PATIENT
  Age: 56 Year
  Sex: Female
  Weight: 45.351 kg

DRUGS (1)
  1. DEPO-PROVERA [Suspect]
     Active Substance: MEDROXYPROGESTERONE ACETATE
     Indication: Contraception

REACTIONS (7)
  - Brain neoplasm [Unknown]
  - Hepatic cirrhosis [Unknown]
  - Abnormal weight gain [Unknown]
  - Maternal exposure during pregnancy [Unknown]
  - Drug ineffective [Unknown]
  - Menstruation delayed [Unknown]
  - Impaired work ability [Unknown]
